FAERS Safety Report 17800166 (Version 2)
Quarter: 2020Q2

REPORT INFORMATION
  Report Type: Report from Study
  Country: None (occurrence: ES)
  Receive Date: 20200519
  Receipt Date: 20200525
  Transmission Date: 20200714
  Serious: Yes (Hospitalization)
  Sender: FDA-Public Use
  Company Number: ES-ABBVIE-20K-144-3402382-00

PATIENT
  Age: 76 Year
  Sex: Female

DRUGS (6)
  1. SINEMET [Concomitant]
     Active Substance: CARBIDOPA\LEVODOPA
     Indication: PRODUCT USED FOR UNKNOWN INDICATION
     Dosage: DOSE 50/200 ONCE PER DAY WHEN GOING TO SLEEP
     Route: 048
     Dates: start: 20200507, end: 20200508
  2. SINEMET [Concomitant]
     Active Substance: CARBIDOPA\LEVODOPA
     Dates: start: 20200514
  3. DUODOPA [Suspect]
     Active Substance: CARBIDOPA\LEVODOPA
     Indication: PARKINSON^S DISEASE
     Route: 050
     Dates: start: 20140624, end: 202005
  4. SINEMET PLUS [Concomitant]
     Active Substance: CARBIDOPA\LEVODOPA
     Indication: PRODUCT USED FOR UNKNOWN INDICATION
     Dosage: DOSE 25/100
     Route: 048
     Dates: start: 20200507, end: 20200508
  5. SINEMET PLUS [Concomitant]
     Active Substance: CARBIDOPA\LEVODOPA
     Route: 048
     Dates: start: 20200514
  6. DUODOPA [Suspect]
     Active Substance: CARBIDOPA\LEVODOPA
     Route: 050
     Dates: start: 202005, end: 20200514

REACTIONS (9)
  - Incorrect route of product administration [Recovered/Resolved]
  - Musculoskeletal stiffness [Unknown]
  - Freezing phenomenon [Unknown]
  - SARS-CoV-2 test positive [Not Recovered/Not Resolved]
  - Tachycardia [Unknown]
  - Speech disorder [Unknown]
  - Aggression [Recovered/Resolved]
  - Unintentional medical device removal [Unknown]
  - Dyspnoea [Recovered/Resolved]

NARRATIVE: CASE EVENT DATE: 2020
